FAERS Safety Report 23708364 (Version 1)
Quarter: 2024Q2

REPORT INFORMATION
  Report Type: Spontaneous
  Country: US (occurrence: US)
  Receive Date: 20240404
  Receipt Date: 20240404
  Transmission Date: 20240716
  Serious: No
  Sender: FDA-Public Use
  Company Number: US-ABBVIE-5706008

PATIENT
  Sex: Female

DRUGS (1)
  1. CANASA [Suspect]
     Active Substance: MESALAMINE
     Indication: Product used for unknown indication
     Dosage: STRENGTH: 1 GM
     Route: 054

REACTIONS (4)
  - Product substitution issue [Recovered/Resolved]
  - Anal pruritus [Recovered/Resolved]
  - Dyschezia [Recovered/Resolved]
  - Proctitis ulcerative [Recovered/Resolved]
